FAERS Safety Report 11571835 (Version 1)
Quarter: 2015Q3

REPORT INFORMATION
  Report Type: Spontaneous
  Country: US (occurrence: US)
  Receive Date: 20150916
  Receipt Date: 20150916
  Transmission Date: 20151125
  Serious: No
  Sender: FDA-Public Use
  Company Number: US-ELI_LILLY_AND_COMPANY-US200909007145

PATIENT
  Sex: Female

DRUGS (2)
  1. FORTEO [Suspect]
     Active Substance: TERIPARATIDE
     Dosage: 20 UG, OTHER
     Dates: start: 2009, end: 2009
  2. FORTEO [Suspect]
     Active Substance: TERIPARATIDE
     Indication: OSTEOPOROSIS
     Dosage: 20 UG, DAILY (1/D)
     Dates: start: 20090902, end: 2009

REACTIONS (8)
  - Cataract [Not Recovered/Not Resolved]
  - Visual acuity reduced [Unknown]
  - Rash [Recovered/Resolved]
  - Cardiac flutter [Unknown]
  - Feeling cold [Unknown]
  - Incorrect dose administered [Unknown]
  - Hyperhidrosis [Unknown]
  - Urticaria [Unknown]

NARRATIVE: CASE EVENT DATE: 2009
